FAERS Safety Report 17411962 (Version 1)
Quarter: 2020Q1

REPORT INFORMATION
  Report Type: Report from Study
  Country: GB (occurrence: GB)
  Receive Date: 20200213
  Receipt Date: 20200213
  Transmission Date: 20200409
  Serious: Yes (Hospitalization)
  Sender: FDA-Public Use
  Company Number: GB-ROCHE-2534954

PATIENT
  Age: 72 Year
  Sex: Male
  Weight: 61 kg

DRUGS (3)
  1. BEVACIZUMAB. [Suspect]
     Active Substance: BEVACIZUMAB
     Indication: PLEURAL MESOTHELIOMA MALIGNANT
     Dosage: DATE OF LAST ADMINISTRATION BEFORE SAE: 06/JAN/2020
     Route: 042
     Dates: start: 20191122
  2. PEMETREXED. [Suspect]
     Active Substance: PEMETREXED
     Indication: PLEURAL MESOTHELIOMA MALIGNANT
     Dosage: 4-6 CYCLES?DATE OF LAST ADMINISTRATION BEFORE SAE: 06/JAN/2020
     Route: 042
     Dates: start: 20191122
  3. CARBOPLATIN. [Suspect]
     Active Substance: CARBOPLATIN
     Indication: PLEURAL MESOTHELIOMA MALIGNANT
     Dosage: 4-6 CYCLES?DATE OF LAST ADMINISTRATION BEFORE SAE: 06/JAN/2020
     Route: 042
     Dates: start: 20191122

REACTIONS (1)
  - Acute kidney injury [Recovering/Resolving]

NARRATIVE: CASE EVENT DATE: 20200124
